FAERS Safety Report 21000645 (Version 2)
Quarter: 2022Q3

REPORT INFORMATION
  Report Type: Spontaneous
  Country: US (occurrence: US)
  Receive Date: 20220623
  Receipt Date: 20220714
  Transmission Date: 20221027
  Serious: Yes (Other)
  Sender: FDA-Public Use
  Company Number: US-INCYTE CORPORATION-2022IN005956

PATIENT

DRUGS (1)
  1. JAKAFI [Suspect]
     Active Substance: RUXOLITINIB
     Indication: Haemophagocytic lymphohistiocytosis
     Dosage: 5 MILLIGRAM, BID
     Route: 048
     Dates: start: 20220317

REACTIONS (3)
  - Pulmonary haemorrhage [Unknown]
  - Interleukin level increased [Unknown]
  - Off label use [Unknown]

NARRATIVE: CASE EVENT DATE: 20220317
